FAERS Safety Report 8391162-2 (Version None)
Quarter: 2012Q2

REPORT INFORMATION
  Report Type: 
  Country: None (occurrence: None)
  Receive Date: 20120529
  Receipt Date: 20120515
  Transmission Date: 20120825
  Serious: Yes (Hospitalization, Other)
  Sender: FDA-Public Use
  Company Number: US-ELI_LILLY_AND_COMPANY-US201205005911

PATIENT
  Sex: Male

DRUGS (4)
  1. INSULIN [Concomitant]
     Dosage: UNK, UNKNOWN
  2. SIMVASTATIN [Concomitant]
     Dosage: UNK, UNKNOWN
  3. CYMBALTA [Suspect]
     Indication: DEPRESSION
     Dosage: UNK, UNKNOWN
  4. VICODIN [Concomitant]
     Dosage: UNK, UNKNOWN

REACTIONS (4)
  - STAPHYLOCOCCAL INFECTION [None]
  - BLISTER [None]
  - VEIN DISORDER [None]
  - CEREBROVASCULAR ACCIDENT [None]
